FAERS Safety Report 7547116-9 (Version None)
Quarter: 2011Q2

REPORT INFORMATION
  Report Type: 
  Country: None (occurrence: None)
  Receive Date: 20110607
  Receipt Date: 20110527
  Transmission Date: 20111010
  Serious: Yes (Other)
  Sender: FDA-Public Use
  Company Number: 2011SP024923

PATIENT
  Age: 44 Year
  Sex: Female

DRUGS (2)
  1. REMERON [Suspect]
     Indication: DEPRESSION
     Dosage: 15 MG;QPM;PO
     Route: 048
     Dates: start: 20100501
  2. ZOLOFT [Concomitant]

REACTIONS (4)
  - WRONG TECHNIQUE IN DRUG USAGE PROCESS [None]
  - GLOSSITIS [None]
  - HYPOAESTHESIA ORAL [None]
  - HYPERSENSITIVITY [None]
